FAERS Safety Report 15006738 (Version 2)
Quarter: 2018Q2

REPORT INFORMATION
  Report Type: Report from Study
  Country: US (occurrence: US)
  Receive Date: 20180613
  Receipt Date: 20180614
  Transmission Date: 20180711
  Serious: Yes (Hospitalization)
  Sender: FDA-Public Use
  Company Number: US-US WORLDMEDS, LLC-USW201712-001810

PATIENT
  Age: 86 Year
  Sex: Male
  Weight: 71.21 kg

DRUGS (20)
  1. ZOLOFT [Suspect]
     Active Substance: SERTRALINE HYDROCHLORIDE
     Indication: ANXIETY
  2. AZILECT [Suspect]
     Active Substance: RASAGILINE MESYLATE
     Dates: start: 20171214
  3. BABY ASPIRIN [Concomitant]
     Active Substance: ASPIRIN
  4. FLOMAX [Concomitant]
     Active Substance: TAMSULOSIN HYDROCHLORIDE
  5. FLUDROCORTISONE [Concomitant]
     Active Substance: FLUDROCORTISONE
  6. TIGAN [Concomitant]
     Active Substance: TRIMETHOBENZAMIDE HYDROCHLORIDE
     Dates: end: 201712
  7. ATIVAN [Concomitant]
     Active Substance: LORAZEPAM
  8. ATORVASTATIN [Concomitant]
     Active Substance: ATORVASTATIN
     Indication: BLOOD CHOLESTEROL
  9. APOKYN [Suspect]
     Active Substance: APOMORPHINE HYDROCHLORIDE
     Route: 058
     Dates: start: 20171027
  10. ALLOPURINOL. [Concomitant]
     Active Substance: ALLOPURINOL
  11. LEVOTHYROXINE. [Concomitant]
     Active Substance: LEVOTHYROXINE
  12. VICTOZA [Concomitant]
     Active Substance: LIRAGLUTIDE
     Indication: DIABETES MELLITUS
  13. SEROQUEL [Concomitant]
     Active Substance: QUETIAPINE FUMARATE
  14. SINEMET [Concomitant]
     Active Substance: CARBIDOPA\LEVODOPA
  15. APOKYN [Suspect]
     Active Substance: APOMORPHINE HYDROCHLORIDE
     Indication: DIAPHRAGMATIC DISORDER
  16. APOKYN [Suspect]
     Active Substance: APOMORPHINE HYDROCHLORIDE
     Route: 058
     Dates: start: 20171027, end: 201801
  17. TRESIBA [Concomitant]
     Active Substance: INSULIN DEGLUDEC
     Indication: BLOOD INSULIN
  18. NOVOLIN [Concomitant]
     Active Substance: INSULIN HUMAN
     Indication: DIABETES MELLITUS
  19. CARBIDOPA/LEVODOPA [Concomitant]
     Active Substance: CARBIDOPA\LEVODOPA
     Indication: PARKINSON^S DISEASE
  20. NOVOLOG [Concomitant]
     Active Substance: INSULIN ASPART

REACTIONS (7)
  - Dyspnoea [Unknown]
  - Diaphragmatic disorder [Not Recovered/Not Resolved]
  - Confusional state [Not Recovered/Not Resolved]
  - Psychotic disorder [Recovering/Resolving]
  - Nausea [Recovered/Resolved]
  - Panic disorder [Recovered/Resolved]
  - Hallucination [Recovered/Resolved]

NARRATIVE: CASE EVENT DATE: 201712
